FAERS Safety Report 15646551 (Version 2)
Quarter: 2019Q1

REPORT INFORMATION
  Report Type: Spontaneous
  Country: NL (occurrence: NL)
  Receive Date: 20181122
  Receipt Date: 20190305
  Transmission Date: 20190417
  Serious: Yes (Other)
  Sender: FDA-Public Use
  Company Number: NL-TEVA-2018-NL-979442

PATIENT
  Age: 48 Year
  Sex: Male

DRUGS (1)
  1. FLUOXETINE [Suspect]
     Active Substance: FLUOXETINE HYDROCHLORIDE
     Indication: BRAIN INJURY
     Dosage: 20 MILLIGRAM DAILY;
     Route: 065
     Dates: end: 20181114

REACTIONS (6)
  - Impaired quality of life [Unknown]
  - Tremor [Unknown]
  - Aggression [Unknown]
  - Suicidal ideation [Not Recovered/Not Resolved]
  - Phantom pain [Not Recovered/Not Resolved]
  - Feeling abnormal [Unknown]
